FAERS Safety Report 5433572-9 (Version None)
Quarter: 2007Q3

REPORT INFORMATION
  Report Type: 
  Country: None (occurrence: None)
  Receive Date: 20070831
  Receipt Date: 20070724
  Transmission Date: 20080115
  Serious: No
  Sender: FDA-Public Use
  Company Number: A0665729A

PATIENT
  Age: 50 Year
  Sex: Female

DRUGS (1)
  1. ALLI [Suspect]
     Dates: start: 20070701, end: 20070721

REACTIONS (3)
  - DIARRHOEA [None]
  - RECTAL DISCHARGE [None]
  - WEIGHT INCREASED [None]
